FAERS Safety Report 18047603 (Version 1)
Quarter: 2020Q3

REPORT INFORMATION
  Report Type: Spontaneous
  Country: US (occurrence: US)
  Receive Date: 20200721
  Receipt Date: 20200721
  Transmission Date: 20201103
  Serious: No
  Sender: FDA-Public Use
  Company Number: US-AUROBINDO-AUR-APL-2019-051947

PATIENT
  Age: 55 Year
  Sex: Male

DRUGS (2)
  1. HYDROCODONE+IBUPROFEN TABLET 7.5 MG/200 MG [Suspect]
     Active Substance: HYDROCODONE BITARTRATE\IBUPROFEN
     Indication: PAIN
     Dosage: UNK, SINCE 02 YEARS USING AUROBINDO MEDICATION
     Route: 065
  2. HYDROCODONE+IBUPROFEN TABLET 7.5 MG/200 MG [Suspect]
     Active Substance: HYDROCODONE BITARTRATE\IBUPROFEN
     Dosage: 6 DOSAGE FORM, ONCE A DAY
     Route: 065
     Dates: start: 201907

REACTIONS (9)
  - Nausea [Not Recovered/Not Resolved]
  - Eye pruritus [Not Recovered/Not Resolved]
  - Pain [Not Recovered/Not Resolved]
  - Headache [Not Recovered/Not Resolved]
  - Lacrimation increased [Not Recovered/Not Resolved]
  - Drug ineffective [Unknown]
  - Constipation [Not Recovered/Not Resolved]
  - Insomnia [Not Recovered/Not Resolved]
  - Product substitution issue [Unknown]

NARRATIVE: CASE EVENT DATE: 20190726
